FAERS Safety Report 12840112 (Version 1)
Quarter: 2016Q4

REPORT INFORMATION
  Report Type: Other
  Country: ES (occurrence: ES)
  Receive Date: 20161012
  Receipt Date: 20161012
  Transmission Date: 20170207
  Serious: Yes (Life-Threatening, Hospitalization, Other)
  Sender: FDA-Public Use
  Company Number: ES-APOPHARMA USA, INC.-2016AP012785

PATIENT
  Age: 31 Year
  Sex: Female

DRUGS (3)
  1. FERRIPROX [Suspect]
     Active Substance: DEFERIPRONE
     Indication: THALASSAEMIA BETA
     Dosage: 4500 MG, QD
     Route: 048
     Dates: start: 201305, end: 20140608
  2. EXJADE [Concomitant]
     Active Substance: DEFERASIROX
     Indication: THALASSAEMIA BETA
     Dosage: 750 MG, QD
     Route: 048
     Dates: start: 201402
  3. YURELAX [Concomitant]
     Active Substance: CYCLOBENZAPRINE HYDROCHLORIDE
     Indication: MYALGIA
     Dosage: 10 MG, QD
     Route: 048
     Dates: start: 20140602, end: 20140608

REACTIONS (3)
  - Septic shock [Unknown]
  - Agranulocytosis [Recovered/Resolved]
  - Perineal abscess [Unknown]

NARRATIVE: CASE EVENT DATE: 20140604
